FAERS Safety Report 6173569-7 (Version None)
Quarter: 2009Q2

REPORT INFORMATION
  Report Type: 
  Country: None (occurrence: None)
  Receive Date: 20090430
  Receipt Date: 20090423
  Transmission Date: 20091009
  Serious: Yes (Hospitalization)
  Sender: FDA-Public Use
  Company Number: B0572408A

PATIENT
  Age: 84 Year
  Sex: Male

DRUGS (2)
  1. ARTIST [Suspect]
     Indication: HYPERTENSION
     Dosage: 30MG PER DAY
     Route: 048
  2. HERBESSER [Suspect]
     Indication: DRUG USE FOR UNKNOWN INDICATION
     Route: 065

REACTIONS (1)
  - ARRHYTHMIA [None]
